FAERS Safety Report 6411555-X (Version None)
Quarter: 2009Q4

REPORT INFORMATION
  Report Type: 
  Country: None (occurrence: None)
  Receive Date: 20091023
  Receipt Date: 20091012
  Transmission Date: 20100525
  Serious: Yes (Other)
  Sender: FDA-Public Use
  Company Number: HU-JNJFOC-20091002086

PATIENT
  Age: 31 Year
  Sex: Female

DRUGS (5)
  1. INLFIXIMAB [Suspect]
     Route: 042
     Dates: start: 20041201, end: 20070701
  2. INLFIXIMAB [Suspect]
     Indication: UVEITIS
     Route: 042
     Dates: start: 20041201, end: 20070701
  3. INLFIXIMAB [Suspect]
     Indication: ANKYLOSING SPONDYLITIS
     Route: 042
     Dates: start: 20041201, end: 20070701
  4. ETANERCEPT [Suspect]
     Indication: UVEITIS
  5. ETANERCEPT [Suspect]
     Indication: ANKYLOSING SPONDYLITIS
     Dosage: 5 MONTHS OF TREATMENT

REACTIONS (5)
  - ANGLE CLOSURE GLAUCOMA [None]
  - ANKYLOSING SPONDYLITIS [None]
  - HYPERSENSITIVITY [None]
  - INFUSION RELATED REACTION [None]
  - UVEITIS [None]
